FAERS Safety Report 17197164 (Version 1)
Quarter: 2019Q4

REPORT INFORMATION
  Report Type: Spontaneous
  Country: SE (occurrence: SE)
  Receive Date: 20191224
  Receipt Date: 20191224
  Transmission Date: 20200122
  Serious: Yes (Hospitalization)
  Sender: FDA-Public Use
  Company Number: SE-ASTRAZENECA-2019SF83035

PATIENT
  Age: 26 Year
  Sex: Male

DRUGS (3)
  1. QUETIAPINE. [Suspect]
     Active Substance: QUETIAPINE
     Dosage: 3, QUETIAPIN, STRENGTH UNKNOWN, ONCE/SINGLE ADMINISTRATION
     Route: 048
     Dates: start: 20190406, end: 20190406
  2. OMEPRAZOLE. [Suspect]
     Active Substance: OMEPRAZOLE
     Dosage: 3 OMPERAZOLE, STRENGTH UNKNOWN, ONCE/SINGLE ADMINISTRATION ONCE/SINGLE ADMINISTRATION
     Route: 048
     Dates: start: 20190406, end: 20190406
  3. PROPAVAN [Suspect]
     Active Substance: PROPIOMAZINE
     Dosage: 150.0MG ONCE/SINGLE ADMINISTRATION
     Route: 048
     Dates: start: 20190406, end: 20190406

REACTIONS (2)
  - Intentional overdose [Unknown]
  - Intentional self-injury [Unknown]

NARRATIVE: CASE EVENT DATE: 20190406
